FAERS Safety Report 9997332 (Version 1)
Quarter: 2014Q1

REPORT INFORMATION
  Report Type: Spontaneous
  Country: US (occurrence: None)
  Receive Date: 20140218
  Receipt Date: 20140218
  Transmission Date: 20141002
  Serious: Yes (Other)
  Sender: FDA-Public Use
  Company Number: 1000051898

PATIENT
  Age: 51 Year
  Sex: Male

DRUGS (8)
  1. VIIBRYD [Suspect]
     Indication: DEPRESSION
     Route: 048
     Dates: start: 201310, end: 2013
  2. ISENTRESS (RALTEGRAVIR POTASSIUM) (RALTEGRAVIR POTASSIUM) [Concomitant]
  3. EPZICOM (ABACAVIR SULFATE W/LAMIVUDINE) (ABACAVIR SULFATE W/LAMIVUDINE) [Concomitant]
  4. VIREAD (TENOFOVIR DISOPROXIL FUMARATE) (TENOFOVIR DISOPROXIL FUMARATE) [Concomitant]
  5. LORAZEPAM (LORAZEPAM) (LORAZEPAM) [Concomitant]
  6. LUNESTA [Concomitant]
  7. TRAZODONE (TRAZODONE) (TRAZODONE) [Concomitant]
  8. HYDROCODONE (HYDROCODONE) (HYDROCODONE) [Concomitant]

REACTIONS (1)
  - Headache [None]
